FAERS Safety Report 8062399-7 (Version None)
Quarter: 2012Q1

REPORT INFORMATION
  Report Type: 
  Country: None (occurrence: None)
  Receive Date: 20120123
  Receipt Date: 20120113
  Transmission Date: 20120608
  Serious: Yes (Other)
  Sender: FDA-Public Use
  Company Number: US-BAYER-2012-005071

PATIENT
  Age: 34 Year
  Sex: Female
  Weight: 69.388 kg

DRUGS (20)
  1. DROSPIRENONE AND ETHINYL ESTRADIOL [Suspect]
     Indication: POLYCYSTIC OVARIES
  2. SINGULAIR [Concomitant]
     Dosage: UNK
     Dates: start: 20050101
  3. METFORMIN [Concomitant]
  4. YASMIN [Suspect]
     Indication: POLYCYSTIC OVARIES
     Dosage: UNK
     Dates: start: 20091201
  5. YAZ [Suspect]
     Indication: CONTRACEPTION
     Dosage: UNK
     Dates: start: 20060701
  6. ALBUTEROL [Concomitant]
     Dosage: UNK
     Dates: start: 19850101
  7. KLONOPIN [Concomitant]
     Dosage: UNK
     Dates: start: 20090101
  8. DROSPIRENONE AND ETHINYL ESTRADIOL [Suspect]
     Indication: CONTRACEPTION
     Dosage: UNK
     Dates: start: 20100401, end: 20100501
  9. NASAL SPRAY [Concomitant]
  10. OMNARIS [Concomitant]
  11. YAZ [Suspect]
     Indication: POLYCYSTIC OVARIES
     Dosage: UNK
     Dates: start: 20090101
  12. MOTRIN [Concomitant]
     Indication: PAIN
     Dosage: UNK
     Dates: start: 20091231, end: 20100101
  13. CLINDAMYCIN [Concomitant]
     Indication: TOOTH INFECTION
     Dosage: UNK
     Dates: start: 20100101, end: 20100102
  14. YASMIN [Suspect]
     Indication: CONTRACEPTION
     Dosage: UNK
     Dates: start: 20060501, end: 20081201
  15. YAZ [Suspect]
     Dosage: UNK
     Dates: start: 20100301
  16. MULTI-VITAMIN [Concomitant]
     Dosage: UNK
     Dates: start: 20050101
  17. ADVAIR DISKUS 100/50 [Concomitant]
     Dosage: UNK
     Dates: start: 20010101
  18. UNCODEABLE ^UNCLASSIFIABLE^ [Concomitant]
  19. LAMICTAL [Concomitant]
     Dosage: UNK
     Dates: start: 20090101
  20. HYDROCODONE BITARTRATE [Concomitant]
     Indication: PAIN
     Dosage: UNK
     Dates: start: 20100101, end: 20100106

REACTIONS (4)
  - BILIARY DYSKINESIA [None]
  - ABDOMINAL PAIN [None]
  - GALLBLADDER DISORDER [None]
  - CHOLECYSTITIS CHRONIC [None]
